FAERS Safety Report 8830801 (Version 1)
Quarter: 2012Q4

REPORT INFORMATION
  Report Type: 
  Country: GB (occurrence: GB)
  Receive Date: 20121009
  Receipt Date: 20121009
  Transmission Date: 20130627
  Serious: Yes (Other)
  Sender: FDA-Public Use
  Company Number: GB-JNJFOC-20121003700

PATIENT
  Age: 10 Month
  Sex: Female

DRUGS (3)
  1. CALPOL [Suspect]
     Indication: PYREXIA
     Route: 065
  2. CALPOL [Suspect]
     Indication: RHINORRHOEA
     Route: 065
  3. CALPOL [Suspect]
     Indication: COUGH
     Route: 065

REACTIONS (8)
  - Psychomotor hyperactivity [Unknown]
  - Rash generalised [Unknown]
  - Adverse event [Unknown]
  - Insomnia [Unknown]
  - Eating disorder [Unknown]
  - Epistaxis [Unknown]
  - Head banging [None]
  - Restlessness [None]
